FAERS Safety Report 24120658 (Version 1)
Quarter: 2024Q3

REPORT INFORMATION
  Report Type: Report from Study
  Country: CA (occurrence: CA)
  Receive Date: 20240722
  Receipt Date: 20240722
  Transmission Date: 20241017
  Serious: Yes (Other)
  Sender: SK LIFE SCIENCE
  Company Number: CA-SK LIFE SCIENCE, INC-SKPVG-2024-001216

PATIENT

DRUGS (21)
  1. XCOPRI [Suspect]
     Active Substance: CENOBAMATE
     Indication: Partial seizures
     Dosage: 12.5 MILLIGRAM, DAILY
     Route: 048
     Dates: start: 20240329, end: 2024
  2. XCOPRI [Suspect]
     Active Substance: CENOBAMATE
     Indication: Epilepsy
     Dosage: 25 MILLIGRAM, DAILY
     Route: 048
     Dates: start: 2024, end: 2024
  3. XCOPRI [Suspect]
     Active Substance: CENOBAMATE
     Dosage: 50 MILLIGRAM, DAILY
     Route: 048
     Dates: start: 2024, end: 2024
  4. XCOPRI [Suspect]
     Active Substance: CENOBAMATE
     Dosage: 100 MILLIGRAM, DAILY
     Route: 048
     Dates: start: 2024, end: 202405
  5. XCOPRI [Suspect]
     Active Substance: CENOBAMATE
     Dosage: 150 MILLIGRAM, DAILY
     Route: 048
     Dates: start: 202405, end: 20240601
  6. XCOPRI [Suspect]
     Active Substance: CENOBAMATE
     Dosage: 100 MILLIGRAM, DAILY
     Route: 048
     Dates: start: 20240602, end: 2024
  7. XCOPRI [Suspect]
     Active Substance: CENOBAMATE
     Dosage: 150 MILLIGRAM, DAILY
     Route: 048
     Dates: start: 2024, end: 2024
  8. XCOPRI [Suspect]
     Active Substance: CENOBAMATE
     Dosage: 100 MILLIGRAM, DAILY
     Route: 048
     Dates: start: 2024
  9. CLOBAZAM [Suspect]
     Active Substance: CLOBAZAM
     Indication: Product used for unknown indication
     Dosage: 20 MILLIGRAM, TID
     Route: 065
  10. CLOBAZAM [Suspect]
     Active Substance: CLOBAZAM
     Dosage: 0.5MG MORNING AND AT 3PM AND 20MG AT NIGHT
     Route: 065
  11. CLOBAZAM [Suspect]
     Active Substance: CLOBAZAM
     Dosage: 5MG NOON AND 20MG QHS
     Route: 065
  12. RUFINAMIDE [Concomitant]
     Active Substance: RUFINAMIDE
     Indication: Product used for unknown indication
     Dosage: 1200 MILLIGRAM, QD
     Route: 065
  13. PYRIDOSTIGMINE [Concomitant]
     Active Substance: PYRIDOSTIGMINE
     Indication: Product used for unknown indication
     Dosage: UNK
     Route: 065
  14. AZATHIOPRINE [Concomitant]
     Active Substance: AZATHIOPRINE
     Indication: Product used for unknown indication
     Dosage: UNK
     Route: 065
  15. MIDAZOLAM [Concomitant]
     Active Substance: MIDAZOLAM
     Indication: Product used for unknown indication
     Dosage: UNK
     Route: 065
  16. PANTOPRAZOLE [Concomitant]
     Active Substance: PANTOPRAZOLE
     Indication: Product used for unknown indication
     Dosage: UNK
     Route: 065
  17. OMEPRAZOLE [Concomitant]
     Active Substance: OMEPRAZOLE
     Indication: Product used for unknown indication
     Dosage: UNK
     Route: 065
  18. IMMUNE GLOBULIN NOS [Concomitant]
     Active Substance: IMMUNE GLOBULIN NOS
     Indication: Product used for unknown indication
     Dosage: UNK
     Route: 065
  19. ESTROGEN NOS [Concomitant]
     Active Substance: ESTROGENS
     Indication: Product used for unknown indication
     Dosage: UNK
     Route: 065
  20. PROGESTERONE [Concomitant]
     Active Substance: PROGESTERONE
     Indication: Product used for unknown indication
     Dosage: UNK
     Route: 065
  21. LACOSAMIDE [Concomitant]
     Active Substance: LACOSAMIDE
     Indication: Product used for unknown indication
     Dosage: UNK
     Route: 065

REACTIONS (11)
  - Myasthenia gravis [Recovering/Resolving]
  - Dysstasia [Recovered/Resolved]
  - Cough [Recovering/Resolving]
  - Off label use [Unknown]
  - Fatigue [Recovered/Resolved]
  - Vomiting [Unknown]
  - Somnolence [Unknown]
  - Gait disturbance [Recovered/Resolved]
  - Balance disorder [Not Recovered/Not Resolved]
  - Feeling drunk [Unknown]
  - Dizziness [Unknown]

NARRATIVE: CASE EVENT DATE: 20240101
